FAERS Safety Report 24529307 (Version 1)
Quarter: 2024Q4

REPORT INFORMATION
  Report Type: Spontaneous
  Country: US (occurrence: None)
  Receive Date: 20241018
  Receipt Date: 20241018
  Transmission Date: 20250114
  Serious: No
  Sender: Public
  Company Number: None

PATIENT
  Age: 9 Year
  Sex: Male
  Weight: 31.9 kg

DRUGS (1)
  1. CEPHALEXIN [Suspect]
     Active Substance: CEPHALEXIN
     Indication: Scarlet fever
     Dosage: FREQUENCY : TWICE A DAY;?
     Route: 048
     Dates: start: 20241012, end: 20241017

REACTIONS (2)
  - Palpitations [None]
  - Dizziness [None]

NARRATIVE: CASE EVENT DATE: 20241017
